FAERS Safety Report 5253642-8 (Version None)
Quarter: 2007Q1

REPORT INFORMATION
  Report Type: 
  Country: None (occurrence: None)
  Receive Date: 20070220
  Receipt Date: 20070205
  Transmission Date: 20070707
  Serious: Yes (Other)
  Sender: FDA-Public Use
  Company Number: B0458342A

PATIENT
  Age: 17 Year
  Sex: Male

DRUGS (5)
  1. VENTOLIN [Suspect]
     Indication: ASTHMA
     Dosage: SEE DOSAGE TEXT INHALED
     Route: 055
  2. VENTOLIN [Suspect]
     Indication: ASTHMA
     Dosage: 136 MG SEE DOSAGE TEXT INHALED
     Route: 055
  3. IPRATROPIUM BROMIDE [Concomitant]
  4. ALBUTEROL SULFATE [Concomitant]
  5. METHYLPREDNISOLONE 16MG TAB [Concomitant]

REACTIONS (4)
  - ATELECTASIS [None]
  - LACTIC ACIDOSIS [None]
  - LUNG HYPERINFLATION [None]
  - METABOLIC ACIDOSIS [None]
